FAERS Safety Report 8473825-3 (Version None)
Quarter: 2012Q2

REPORT INFORMATION
  Report Type: 
  Country: None (occurrence: None)
  Receive Date: 20120628
  Receipt Date: 20111229
  Transmission Date: 20120825
  Serious: Yes (Death)
  Sender: FDA-Public Use
  Company Number: US-MYLANLABS-2011S1025288

PATIENT
  Age: 64 Year
  Sex: Male

DRUGS (7)
  1. LISINOPRIL AND HYDROCHLOROTHIAZIDE [Concomitant]
     Dosage: 10MG/12.5MG
  2. TRIHEXYPHENIDYL HCL [Concomitant]
  3. CLOZAPINE [Suspect]
     Route: 048
     Dates: start: 20111101
  4. METOPROLOL TARTRATE [Concomitant]
  5. CLOZAPINE [Suspect]
     Route: 048
     Dates: start: 20111101
  6. DEPAKOTE [Concomitant]
  7. INVEGA [Concomitant]

REACTIONS (1)
  - DEATH [None]
